FAERS Safety Report 6419522-7 (Version None)
Quarter: 2009Q4

REPORT INFORMATION
  Report Type: 
  Country: None (occurrence: None)
  Receive Date: 20091029
  Receipt Date: 20091019
  Transmission Date: 20100525
  Serious: Yes (Hospitalization)
  Sender: FDA-Public Use
  Company Number: FR-PFIZER INC-2009285071

PATIENT
  Age: 79 Year

DRUGS (10)
  1. IRINOTECAN HCL [Suspect]
     Indication: COLORECTAL CANCER
     Dosage: 180 MG/M2 (200 MG)
     Dates: start: 20080423, end: 20080423
  2. FLUOROURACIL [Suspect]
     Indication: COLORECTAL CANCER
     Dosage: 400 MG/M2 (700 MG)
     Route: 040
     Dates: start: 20080423, end: 20080423
  3. FLUOROURACIL [Suspect]
     Dosage: 2400 MG/M2 (4250 MG)
     Route: 041
     Dates: start: 20080423, end: 20080425
  4. FOLINIC ACID [Suspect]
     Indication: COLORECTAL CANCER
     Dosage: 200 MG/M2 (350 MG)
     Dates: start: 20080423, end: 20080423
  5. PLITICAN [Concomitant]
  6. ATROPINE [Concomitant]
  7. ONDASETRON [Concomitant]
  8. BI-PROFENID [Concomitant]
  9. EFFERALGAN [Concomitant]
  10. METHYLPREDNISOLONE [Concomitant]

REACTIONS (3)
  - ABSCESS [None]
  - BACK PAIN [None]
  - PYREXIA [None]
